FAERS Safety Report 9961409 (Version 1)
Quarter: 2014Q1

REPORT INFORMATION
  Report Type: Spontaneous
  Country: US (occurrence: None)
  Receive Date: 20140127
  Receipt Date: 20140127
  Transmission Date: 20141002
  Serious: Yes (Hospitalization)
  Sender: FDA-Public Use
  Company Number: 1180286

PATIENT
  Age: 11 Year
  Sex: Female

DRUGS (6)
  1. ALTEPLASE [Suspect]
     Indication: ATELECTASIS
     Route: 055
  2. ACETYLCYSTEINE [Suspect]
     Indication: ATELECTASIS
     Route: 055
  3. DORNASE ALFA [Suspect]
     Indication: ATELECTASIS
     Route: 055
  4. SODIUM CHLORIDE [Suspect]
     Indication: ATELECTASIS
  5. AZITHROMYCIN (AZITHROMYCIN) [Suspect]
     Indication: ATELECTASIS
  6. BOSENTAN [Suspect]
     Indication: ATELECTASIS

REACTIONS (1)
  - Drug ineffective [None]
